FAERS Safety Report 17372146 (Version 2)
Quarter: 2020Q1

REPORT INFORMATION
  Report Type: Spontaneous
  Country: JP (occurrence: JP)
  Receive Date: 20200205
  Receipt Date: 20200220
  Transmission Date: 20200409
  Serious: Yes (Hospitalization, Other)
  Sender: FDA-Public Use
  Company Number: JP-AMGEN-JPNSP2020020172

PATIENT
  Age: 6 Decade
  Sex: Male

DRUGS (5)
  1. TAMOXIFEN [Suspect]
     Active Substance: TAMOXIFEN
     Indication: BREAST CANCER MALE
     Dosage: 20 MILLIGRAM, QD
     Route: 048
     Dates: start: 202001
  2. PACLITAXEL. [Concomitant]
     Active Substance: PACLITAXEL
     Indication: BREAST CANCER MALE
     Dosage: 175 UNK, Q2WK (1X/2 WEEKS)
     Route: 041
  3. EPIRUBICIN HYDROCHLORIDE. [Concomitant]
     Active Substance: EPIRUBICIN HYDROCHLORIDE
     Indication: BREAST CANCER MALE
     Dosage: 90 UNK, Q2WK (1X/2 WEEKS)
     Route: 041
  4. G-LASTA [Suspect]
     Active Substance: PEGFILGRASTIM
     Indication: PRODUCT USED FOR UNKNOWN INDICATION
     Dosage: UNK, Q2WK (1X/2 WEEKS (8 TIMES))
     Route: 058
  5. CYCLOPHOSPHAMIDE. [Concomitant]
     Active Substance: CYCLOPHOSPHAMIDE
     Indication: BREAST CANCER MALE
     Dosage: 600 UNK, Q2WK (1X/2 WEEKS)
     Route: 041

REACTIONS (1)
  - Pancytopenia [Recovered/Resolved]
